FAERS Safety Report 13180390 (Version 1)
Quarter: 2017Q1

REPORT INFORMATION
  Report Type: Spontaneous
  Country: BE (occurrence: BE)
  Receive Date: 20170202
  Receipt Date: 20170202
  Transmission Date: 20170428
  Serious: Yes (Other)
  Sender: FDA-Public Use
  Company Number: PHHY2017BE013451

PATIENT
  Age: 53 Year
  Sex: Male

DRUGS (10)
  1. OCTREOTIDE, LONG ACTING [Suspect]
     Active Substance: OCTREOTIDE ACETATE
     Indication: INSULINOMA
     Dosage: 30 MG, QMO
     Route: 065
  2. EVEROLIMUS [Suspect]
     Active Substance: EVEROLIMUS
     Indication: HYPOGLYCAEMIA
  3. OCTREOTIDE, LONG ACTING [Suspect]
     Active Substance: OCTREOTIDE ACETATE
     Indication: HYPOGLYCAEMIA
  4. DIAZOXIDE [Suspect]
     Active Substance: DIAZOXIDE
     Indication: HYPOGLYCAEMIA
     Dosage: 300 MG, QD (3X 100 MG/DAY)
     Route: 065
  5. DOXORUBICIN [Concomitant]
     Active Substance: DOXORUBICIN
     Indication: HYPOGLYCAEMIA
     Dosage: 50 MG/M2 (BEADS) TWICE,
     Route: 065
  6. OCTREOTIDE. [Suspect]
     Active Substance: OCTREOTIDE
     Indication: INSULINOMA
     Dosage: 1.5 MG, QD (3X 0.5MG/DAY)
     Route: 065
  7. OCTREOTIDE. [Suspect]
     Active Substance: OCTREOTIDE
     Indication: HYPOGLYCAEMIA
  8. EVEROLIMUS [Suspect]
     Active Substance: EVEROLIMUS
     Indication: INSULINOMA
     Dosage: 10 MG, QD
     Route: 065
  9. FOLFOX [Concomitant]
     Active Substance: FLUOROURACIL\LEUCOVORIN CALCIUM\OXALIPLATIN
     Indication: PRODUCT USED FOR UNKNOWN INDICATION
     Dosage: OXALIPLATIN 85MG/M^ DAY 1, LEVOFOLIC ACID 200MG/M^ DAY
     Route: 065
  10. GLUCOSE [Suspect]
     Active Substance: DEXTROSE
     Indication: HYPOGLYCAEMIA
     Dosage: HYPERTONIC
     Route: 065

REACTIONS (4)
  - Insulinoma [Unknown]
  - Hypoglycaemic coma [Unknown]
  - Malignant neoplasm progression [Unknown]
  - Drug effect incomplete [Unknown]
